FAERS Safety Report 9342079 (Version 1)
Quarter: 2013Q2

REPORT INFORMATION
  Report Type: Spontaneous
  Country: GB (occurrence: None)
  Receive Date: 20130606
  Receipt Date: 20130606
  Transmission Date: 20140414
  Serious: Yes (Other)
  Sender: FDA-Public Use
  Company Number: GER/UKI/13/0029846

PATIENT
  Age: 74 Year
  Sex: 0

DRUGS (12)
  1. CLOPIDOGREL (CLOPIDOGREL) [Suspect]
     Indication: PRODUCT USED FOR UNKNOWN INDICATION
  2. QUININE [Concomitant]
  3. ASPIRIN [Concomitant]
  4. ATENOLOL [Concomitant]
  5. BENDROFLUMETHIAZIDE [Concomitant]
  6. CACIT VITAMIN D3 [Concomitant]
  7. FERROUS SULPHATE [Concomitant]
  8. GLUCOPHAGE [Concomitant]
  9. LISINOPRIL [Concomitant]
  10. OMEPRAZOLE [Concomitant]
  11. SOLVAZINC [Concomitant]
  12. CLICLAZIDE [Concomitant]

REACTIONS (3)
  - Throat irritation [None]
  - Vomiting [None]
  - Malaise [None]
